FAERS Safety Report 8436990-X (Version None)
Quarter: 2012Q2

REPORT INFORMATION
  Report Type: 
  Country: None (occurrence: None)
  Receive Date: 20120614
  Receipt Date: 20120612
  Transmission Date: 20120825
  Serious: Yes (Death, Hospitalization)
  Sender: FDA-Public Use
  Company Number: US-ELI_LILLY_AND_COMPANY-US201204006369

PATIENT
  Sex: Female
  Weight: 61.224 kg

DRUGS (9)
  1. EFFIENT [Suspect]
     Indication: STENT PLACEMENT
     Dosage: 60 MG, SINGLE
     Dates: end: 20120412
  2. ENALAPRIL MALEATE [Concomitant]
  3. EFFIENT [Suspect]
     Dosage: 10 MG, UNK
     Route: 048
     Dates: start: 20120330, end: 20120412
  4. NITROSTAT [Concomitant]
     Route: 060
  5. LIPITOR [Concomitant]
  6. BYSTOLIC [Concomitant]
  7. ASPIRIN [Concomitant]
  8. METHOTREXATE SODIUM [Concomitant]
  9. AMLODIPINE [Concomitant]

REACTIONS (3)
  - INTRACRANIAL ANEURYSM [None]
  - BRAIN DEATH [None]
  - SUBARACHNOID HAEMORRHAGE [None]
